FAERS Safety Report 5326160-6 (Version None)
Quarter: 2007Q2

REPORT INFORMATION
  Report Type: 
  Country: None (occurrence: None)
  Receive Date: 20070516
  Receipt Date: 20070508
  Transmission Date: 20071010
  Serious: Yes (Hospitalization)
  Sender: FDA-Public Use
  Company Number: US-AVENTIS-200712537US

PATIENT
  Sex: Female

DRUGS (17)
  1. KETEK [Suspect]
     Indication: BRONCHITIS
     Route: 048
     Dates: start: 20070328, end: 20070329
  2. KETEK [Suspect]
     Indication: PHARYNGITIS
     Route: 048
     Dates: start: 20070328, end: 20070329
  3. ZYLOPRIM [Concomitant]
  4. CLARITIN [Concomitant]
  5. OTHER ANTITUSSIVES AND EXPECTORANTS [Concomitant]
     Dosage: DOSE: ONE TID
  6. ATENOLOL [Concomitant]
  7. LISINOPRIL [Concomitant]
  8. LIPITOR [Concomitant]
  9. PHENERGAN DM [Concomitant]
     Dosage: DOSE: UNK
  10. PATANOL [Concomitant]
     Dosage: DOSE: UNK
  11. ZYRTEC [Concomitant]
  12. GUAIFENESIN [Concomitant]
     Dosage: DOSE: UNK
  13. CEPACOL                            /00283202/ [Concomitant]
     Dosage: DOSE: UNK
  14. ALLEGRA [Concomitant]
     Dosage: DOSE: UNK
  15. TYLENOL [Concomitant]
     Dosage: DOSE: UNK
  16. NASONEX [Concomitant]
     Dosage: DOSE: UNK
  17. TEIRIA                             /00598401/ [Concomitant]
     Dosage: DOSE: UNK

REACTIONS (18)
  - ANGIOEDEMA [None]
  - BLOOD GLUCOSE INCREASED [None]
  - BURNS SECOND DEGREE [None]
  - CEREBRAL ISCHAEMIA [None]
  - CYANOSIS [None]
  - FACE OEDEMA [None]
  - METABOLIC ACIDOSIS [None]
  - OESOPHAGITIS [None]
  - OLIGURIA [None]
  - PERIORBITAL OEDEMA [None]
  - RESPIRATORY FAILURE [None]
  - SEPSIS [None]
  - SEPTIC SHOCK [None]
  - SKIN EXFOLIATION [None]
  - SKIN INFECTION [None]
  - STEVENS-JOHNSON SYNDROME [None]
  - SYNCOPE [None]
  - WHITE BLOOD CELL COUNT INCREASED [None]
